FAERS Safety Report 8949074 (Version 2)
Quarter: 2012Q4

REPORT INFORMATION
  Report Type: Report from Study
  Country: KR (occurrence: KR)
  Receive Date: 20121206
  Receipt Date: 20121214
  Transmission Date: 20130627
  Serious: Yes (Hospitalization)
  Sender: FDA-Public Use
  Company Number: KR-CELGENEUS-286-C5013-12113858

PATIENT
  Age: 63 Year
  Sex: Male
  Weight: 63.5 kg

DRUGS (10)
  1. CC-5013 [Suspect]
     Indication: MULTIPLE MYELOMA
     Dosage: 15 Milligram
     Route: 048
     Dates: start: 20100701
  2. DEXAMETHASONE [Suspect]
     Indication: MULTIPLE MYELOMA
     Dosage: 40 Milligram
     Route: 065
     Dates: start: 20100701
  3. ARTEMISIAE ARGYI [Concomitant]
     Indication: PROPHYLAXIS
     Route: 048
     Dates: start: 20121108, end: 20121110
  4. PELUBIPROFEN [Concomitant]
     Indication: FRACTURE PAIN
     Route: 048
     Dates: start: 20121108, end: 20121110
  5. TRAMADOL [Concomitant]
     Indication: SHOULDER PAIN
     Route: 048
     Dates: start: 20121118, end: 20121127
  6. IRBESARTAN [Concomitant]
     Indication: HYPERTENSION
     Route: 048
     Dates: start: 20110127
  7. ACETYLCYSTEINE [Concomitant]
     Indication: SPUTUM
     Route: 048
     Dates: start: 20121129, end: 20121130
  8. AMOXICILLIN [Concomitant]
     Indication: OTITIS
     Route: 048
     Dates: start: 20121201
  9. PETNIDINE [Concomitant]
     Indication: PAIN
     Route: 030
     Dates: start: 20121129
  10. REBAMIPIDE [Concomitant]
     Indication: PROPHYLAXIS
     Route: 030
     Dates: start: 20121129

REACTIONS (1)
  - Plasmacytoma [Not Recovered/Not Resolved]
